FAERS Safety Report 23371673 (Version 2)
Quarter: 2024Q2

REPORT INFORMATION
  Report Type: Spontaneous
  Country: US (occurrence: US)
  Receive Date: 20240105
  Receipt Date: 20240531
  Transmission Date: 20240716
  Serious: Yes (Other)
  Sender: FDA-Public Use
  Company Number: US-PFIZER INC-PV202300137115

PATIENT
  Age: 69 Year
  Sex: Female
  Weight: 78.005 kg

DRUGS (10)
  1. IBRANCE [Suspect]
     Active Substance: PALBOCICLIB
     Indication: Breast cancer
     Dosage: 125 MG, ONCE DAILY FOR 21 DAYS
     Route: 048
     Dates: start: 2021
  2. IBRANCE [Suspect]
     Active Substance: PALBOCICLIB
     Dosage: 125 MG (1 P.O. PER ORAL EVERY Q. DAY)
     Route: 048
     Dates: start: 20220228
  3. IBRANCE [Suspect]
     Active Substance: PALBOCICLIB
     Dosage: 125 MG, CYCLIC (1 P.O. Q. DAY FOR 21 DAYS)
     Route: 048
     Dates: start: 20220706
  4. IBRANCE [Suspect]
     Active Substance: PALBOCICLIB
     Dosage: 125 MG, CYCLIC (1 P.O. Q. DAY FOR 21 DAYS)
     Route: 048
     Dates: start: 20230911
  5. IBRANCE [Suspect]
     Active Substance: PALBOCICLIB
     Dosage: 100 MG
     Dates: start: 202311
  6. IBRANCE [Suspect]
     Active Substance: PALBOCICLIB
     Dosage: 125 MG, CYCLIC (1 P.O. Q. DAY FOR 21 DAYS)
     Route: 048
     Dates: start: 20240126
  7. IBRANCE [Suspect]
     Active Substance: PALBOCICLIB
     Indication: Breast cancer
     Dosage: 100 MG, CYCLIC (1 P.O. Q. DAY FOR 21 DAYS, OFF FOR 7 DAYS)
     Route: 048
     Dates: start: 20231113
  8. IBRANCE [Suspect]
     Active Substance: PALBOCICLIB
     Dosage: 100 MG, CYCLIC (1 P.O. Q. DAY FOR 21 DAYS, OFF FOR 7 DAYS)
     Route: 048
     Dates: start: 20240423
  9. IBRANCE [Suspect]
     Active Substance: PALBOCICLIB
     Dosage: 75 MG, CYCLIC (1 P.O. Q. DAY FOR 21 DAYS, OFF FOR 7 DAYS)
     Route: 048
     Dates: start: 20240521
  10. ANASTROZOLE [Concomitant]
     Active Substance: ANASTROZOLE
     Dosage: UNK
     Dates: start: 2021

REACTIONS (2)
  - Chronic kidney disease [Unknown]
  - Oral pain [Not Recovered/Not Resolved]

NARRATIVE: CASE EVENT DATE: 20231101
